FAERS Safety Report 9310569 (Version 1)
Quarter: 2013Q2

REPORT INFORMATION
  Report Type: Other
  Country: US (occurrence: US)
  Receive Date: 20130527
  Receipt Date: 20130527
  Transmission Date: 20140414
  Serious: Yes (Hospitalization, Other)
  Sender: FDA-Public Use
  Company Number: US-ACTELION-A-CH2013-83419

PATIENT
  Age: 69 Year
  Sex: Female

DRUGS (5)
  1. TRACLEER [Suspect]
     Indication: PULMONARY ARTERIAL HYPERTENSION
     Route: 048
  2. EPOPROSTENOL [Concomitant]
  3. SPIRONOLACTONE [Concomitant]
  4. WARFARIN [Concomitant]
  5. TRIAMTERENE [Concomitant]

REACTIONS (7)
  - Fluid overload [Recovering/Resolving]
  - Atrial flutter [Unknown]
  - Hypotension [Unknown]
  - Dyspnoea [Unknown]
  - Waist circumference increased [Recovering/Resolving]
  - Weight increased [Recovering/Resolving]
  - Tachycardia [Unknown]
